FAERS Safety Report 15984013 (Version 2)
Quarter: 2019Q1

REPORT INFORMATION
  Report Type: Spontaneous
  Country: BR (occurrence: BR)
  Receive Date: 20190220
  Receipt Date: 20190308
  Transmission Date: 20190418
  Serious: Yes (Other)
  Sender: FDA-Public Use
  Company Number: BR-009507513-1902BRA005757

PATIENT
  Age: 34 Year
  Sex: Female
  Weight: 51 kg

DRUGS (4)
  1. NUVARING [Suspect]
     Active Substance: ETHINYL ESTRADIOL\ETONOGESTREL
     Indication: CONTRACEPTION
     Dosage: 1 RING FOR 3 WEEKS FOLLOWED BY A 7-DAY PAUSE
     Route: 067
     Dates: start: 201806, end: 201806
  2. NUVARING [Suspect]
     Active Substance: ETHINYL ESTRADIOL\ETONOGESTREL
     Dosage: 1 RING FOR 3 WEEKS FOLLOWED BY A 7-DAY PAUSE
     Route: 067
     Dates: start: 201808, end: 201808
  3. NUVARING [Suspect]
     Active Substance: ETHINYL ESTRADIOL\ETONOGESTREL
     Dosage: 1 RING FOR 3 WEEKS FOLLOWED BY A 7-DAY PAUSE
     Route: 067
     Dates: start: 2018, end: 2018
  4. NUVARING [Suspect]
     Active Substance: ETHINYL ESTRADIOL\ETONOGESTREL
     Dosage: 1 RING FOR 3 WEEKS FOLLOWED BY A 7-DAY PAUSE
     Route: 067
     Dates: start: 20190202, end: 20190223

REACTIONS (8)
  - Urinary tract discomfort [Recovered/Resolved]
  - Urinary tract infection [Unknown]
  - Nephrolithiasis [Unknown]
  - Pain [Unknown]
  - Dysuria [Unknown]
  - Pain [Recovered/Resolved]
  - Vaginal infection [Not Recovered/Not Resolved]
  - Renal pain [Unknown]

NARRATIVE: CASE EVENT DATE: 201806
